FAERS Safety Report 9562075 (Version 1)
Quarter: 2013Q3

REPORT INFORMATION
  Report Type: Spontaneous
  Country: IT (occurrence: IT)
  Receive Date: 20130927
  Receipt Date: 20130927
  Transmission Date: 20140515
  Serious: Yes (Other)
  Sender: FDA-Public Use
  Company Number: IT-IPSEN BIOPHARMACEUTICALS, INC.-2013-4252

PATIENT
  Age: 8 Year
  Sex: Male

DRUGS (1)
  1. INCRELEX 10 MG/ML [Suspect]
     Indication: INSULIN-LIKE GROWTH FACTOR DECREASED
     Route: 065

REACTIONS (2)
  - Skeletal dysplasia [Unknown]
  - Condition aggravated [Unknown]
